FAERS Safety Report 19380075 (Version 1)
Quarter: 2021Q2

REPORT INFORMATION
  Report Type: Spontaneous
  Country: CA (occurrence: CA)
  Receive Date: 20210607
  Receipt Date: 20210607
  Transmission Date: 20210717
  Serious: Yes (Other)
  Sender: FDA-Public Use
  Company Number: CA-JNJFOC-20210448659

PATIENT
  Age: 39 Year
  Sex: Male

DRUGS (5)
  1. MESALAMINE DELAYED RELEASE [Concomitant]
     Active Substance: MESALAMINE
     Indication: COLITIS ULCERATIVE
     Route: 065
  2. REMICADE [Suspect]
     Active Substance: INFLIXIMAB
     Indication: COLITIS ULCERATIVE
     Route: 042
  3. REMICADE [Suspect]
     Active Substance: INFLIXIMAB
     Indication: CROHN^S DISEASE
     Route: 042
  4. PREDNISONE. [Concomitant]
     Active Substance: PREDNISONE
     Route: 065
  5. MESALAMINE EXTENDED RELEASE [Concomitant]
     Indication: COLITIS ULCERATIVE
     Route: 065

REACTIONS (5)
  - Blood pressure increased [Unknown]
  - Intentional product use issue [Unknown]
  - Tonsillar disorder [Unknown]
  - Condition aggravated [Unknown]
  - Off label use [Unknown]
